FAERS Safety Report 8374022-2 (Version None)
Quarter: 2012Q2

REPORT INFORMATION
  Report Type: 
  Country: None (occurrence: None)
  Receive Date: 20120517
  Receipt Date: 20120517
  Transmission Date: 20120825
  Serious: Yes (Life-Threatening, Hospitalization)
  Sender: FDA-Public Use
  Company Number: None

PATIENT
  Age: 65 Year
  Sex: Female
  Weight: 94 kg

DRUGS (1)
  1. ACTIVASE [Suspect]
     Indication: CEREBROVASCULAR ACCIDENT
     Dosage: 8.6MG ONCE IV BOLUS; 77MG ONCE IV DRIP
     Route: 040
     Dates: start: 20120513, end: 20120513

REACTIONS (3)
  - BLOOD PRESSURE DECREASED [None]
  - ANAPHYLACTIC REACTION [None]
  - ANGIOEDEMA [None]
